FAERS Safety Report 9185770 (Version 1)
Quarter: 2013Q1

REPORT INFORMATION
  Report Type: Spontaneous
  Country: US (occurrence: None)
  Receive Date: 20120628
  Receipt Date: 20120628
  Transmission Date: 20140127
  Serious: Yes (Other)
  Sender: FDA-Public Use
  Company Number: PHEH2011US02741

PATIENT
  Age: 53 Year
  Sex: Female
  Weight: 82 kg

DRUGS (9)
  1. RECLAST [Suspect]
     Indication: OSTEOPOROSIS
     Dosage: 5MG/100 ML PER YEAR INTRAVENOUS
     Dates: start: 20110818
  2. FLEXERIL (CYCLOBENZAPRINE HYDROCHLORIDE) [Concomitant]
  3. MULTIVITAMINS (ASCORBIC ACID, ERGOCALCIFEROL, FOLIC ACID, NICOTINAMIDE, PANTHENOL, RETINOL, RIBOFLAVIN, THAIMINE HYDROCHLORIDE) [Concomitant]
  4. ZYRTEC (CETIRAZINE HYDROCHLORIDE) [Concomitant]
  5. TYLENOL EXTRA-STRENGTH (PARACETMOL) [Concomitant]
  6. THEOPHYLLINE (THEOPHYLLINE) [Concomitant]
  7. INTREX (SUMATRIPTAN SUCCINATE) [Concomitant]
  8. NEUTRONIN (GABAPENTIN) [Concomitant]
  9. CELESTENE (BETAMETHASONE) [Concomitant]

REACTIONS (5)
  - Bone pain [None]
  - Arthralgia [None]
  - Pain [None]
  - Headache [None]
  - Nausea [None]
